FAERS Safety Report 6206117-3 (Version None)
Quarter: 2009Q2

REPORT INFORMATION
  Report Type: 
  Country: None (occurrence: None)
  Receive Date: 20090528
  Receipt Date: 20071127
  Transmission Date: 20091009
  Serious: Yes (Death, Hospitalization, Other)
  Sender: FDA-Public Use
  Company Number: US-ASTRAZENECA-2006UW23075

PATIENT
  Age: 68 Year
  Sex: Male
  Weight: 80.7 kg

DRUGS (19)
  1. SEROQUEL [Suspect]
     Indication: SCHIZOPHRENIA
     Route: 048
     Dates: start: 20020101, end: 20070220
  2. SEROQUEL [Suspect]
     Indication: DEPRESSION
     Route: 048
     Dates: start: 20020101, end: 20070220
  3. ALEVE [Concomitant]
  4. LANOXIN [Concomitant]
  5. AVANDIA [Concomitant]
  6. DILTIAZEM [Concomitant]
  7. POTASSIUM CHLORIDE [Concomitant]
  8. LASIX [Concomitant]
  9. PLAVIX [Concomitant]
  10. RYTHMOL [Concomitant]
  11. ALTACE [Concomitant]
  12. GLUCOPHAGE [Concomitant]
  13. LANTUS [Concomitant]
  14. TYLENOL [Concomitant]
  15. NITROGLYCERIN [Concomitant]
  16. IRON [Concomitant]
  17. ZOLOFT [Concomitant]
  18. ASPIRIN [Concomitant]
  19. ALBUTEROL [Concomitant]

REACTIONS (17)
  - ANAEMIA [None]
  - ANGINA PECTORIS [None]
  - ASCITES [None]
  - ATRIAL FIBRILLATION [None]
  - BUNDLE BRANCH BLOCK RIGHT [None]
  - CARDIAC FAILURE CONGESTIVE [None]
  - CARDIOMEGALY [None]
  - CORONARY ARTERY DISEASE [None]
  - DEATH [None]
  - DIABETES MELLITUS [None]
  - DIZZINESS [None]
  - HYPERHIDROSIS [None]
  - HYPOAESTHESIA [None]
  - MEMORY IMPAIRMENT [None]
  - OEDEMA PERIPHERAL [None]
  - POLYARTHRITIS [None]
  - TACHYARRHYTHMIA [None]
